FAERS Safety Report 8826108 (Version 4)
Quarter: 2013Q1

REPORT INFORMATION
  Report Type: Spontaneous
  Country: US (occurrence: US)
  Receive Date: 20121005
  Receipt Date: 20130226
  Transmission Date: 20140127
  Serious: Yes (Death)
  Sender: FDA-Public Use
  Company Number: PHEH2012US016984

PATIENT
  Sex: Female
  Weight: 49.89 kg

DRUGS (5)
  1. AFINITOR [Suspect]
     Indication: BREAST CANCER METASTATIC
     Dosage: 10 MG, DAILY
     Route: 048
     Dates: start: 20120823
  2. EXEMESTANE [Concomitant]
  3. NEURONTIN [Concomitant]
  4. DILAUDID [Concomitant]
  5. ZOFRAN [Concomitant]

REACTIONS (5)
  - Breast cancer metastatic [Fatal]
  - Nausea [Unknown]
  - Decreased appetite [Unknown]
  - Fatigue [Unknown]
  - Drug ineffective [Unknown]
